FAERS Safety Report 5120496-X (Version None)
Quarter: 2006Q3

REPORT INFORMATION
  Report Type: 
  Country: None (occurrence: None)
  Receive Date: 20060928
  Receipt Date: 20060913
  Transmission Date: 20061208
  Serious: Yes (Hospitalization, Other)
  Sender: FDA-Public Use
  Company Number: PHBS2006JP14108

PATIENT
  Age: 28 Year

DRUGS (2)
  1. CYCLOSPORINE [Suspect]
     Indication: NEPHROTIC SYNDROME
     Dosage: 150 TO 300 MG/D, ORAL
     Route: 048
  2. PREDNISOLONE TAB [Suspect]
     Indication: NEPHROTIC SYNDROME
     Dosage: ORAL
     Route: 048

REACTIONS (3)
  - DISEASE RECURRENCE [None]
  - NEPHROPATHY TOXIC [None]
  - NEPHROTIC SYNDROME [None]
